FAERS Safety Report 8759379 (Version 1)
Quarter: 2012Q4

REPORT INFORMATION
  Report Type: Report from Study
  Country: US (occurrence: US)
  Receive Date: 20120829
  Receipt Date: 20120829
  Transmission Date: 20130627
  Serious: Yes (Hospitalization, Other)
  Sender: FDA-Public Use
  Company Number: US-PURDUE-USA-2012-0092047

PATIENT
  Sex: Female

DRUGS (3)
  1. OXYCONTIN (NDA 22-272) [Suspect]
     Indication: PRODUCT USED FOR UNKNOWN INDICATION
     Dosage: 20 mg, daily
     Route: 048
  2. OXYCONTIN (NDA 22-272) [Suspect]
     Dosage: 60 mg, daily
     Route: 048
  3. OXYCONTIN (NDA 22-272) [Suspect]
     Dosage: 80 mg, bid

REACTIONS (3)
  - Upper limb fracture [Unknown]
  - Patella fracture [Unknown]
  - Fall [Unknown]
